FAERS Safety Report 11529505 (Version 1)
Quarter: 2015Q3

REPORT INFORMATION
  Report Type: Spontaneous
  Country: BR (occurrence: BR)
  Receive Date: 20150921
  Receipt Date: 20150921
  Transmission Date: 20151125
  Serious: Yes (Other)
  Sender: FDA-Public Use
  Company Number: BR-PFIZER INC-2015234020

PATIENT
  Age: 56 Year
  Sex: Male
  Weight: 87.6 kg

DRUGS (5)
  1. CAMPTOSAR [Suspect]
     Active Substance: IRINOTECAN HYDROCHLORIDE
     Dosage: UNK
  2. DEXAMETASONA /00016001/ [Concomitant]
  3. CAMPTOSAR [Suspect]
     Active Substance: IRINOTECAN HYDROCHLORIDE
     Indication: COLORECTAL CANCER
     Dosage: 360 MG, EVERY 14 DAYS
     Route: 042
  4. ONICIT [Concomitant]
     Active Substance: PALONOSETRON HYDROCHLORIDE
  5. CALCIUM FOLINATE [Concomitant]
     Active Substance: LEUCOVORIN CALCIUM

REACTIONS (4)
  - Throat irritation [Unknown]
  - Hyperhidrosis [Unknown]
  - Malaise [Unknown]
  - Sneezing [Unknown]

NARRATIVE: CASE EVENT DATE: 20150506
